FAERS Safety Report 4815190-6 (Version None)
Quarter: 2005Q4

REPORT INFORMATION
  Report Type: 
  Country: None (occurrence: None)
  Receive Date: 20051026
  Receipt Date: 20051011
  Transmission Date: 20060501
  Serious: Yes (Hospitalization)
  Sender: FDA-Public Use
  Company Number: 2005001990

PATIENT
  Age: 89 Year
  Sex: Female
  Weight: 52 kg

DRUGS (3)
  1. TARCEVA [Suspect]
     Indication: NON-SMALL CELL LUNG CANCER
     Dosage: (QD), ORAL
     Route: 048
     Dates: start: 20050901
  2. ALLOPURINLL (ALLOPURINOL) [Concomitant]
  3. ANTIBIOTICS (ANTIBIOTICS) [Concomitant]

REACTIONS (6)
  - AZOTAEMIA [None]
  - DIALYSIS [None]
  - MENTAL STATUS CHANGES [None]
  - NEPHRITIS INTERSTITIAL [None]
  - RENAL FAILURE ACUTE [None]
  - URINE ABNORMALITY [None]
